FAERS Safety Report 21699582 (Version 2)
Quarter: 2023Q1

REPORT INFORMATION
  Report Type: Report from Study
  Country: US (occurrence: US)
  Receive Date: 20221208
  Receipt Date: 20230201
  Transmission Date: 20230417
  Serious: No
  Sender: FDA-Public Use
  Company Number: US-ABBVIE-22K-163-4424270-00

PATIENT
  Sex: Female

DRUGS (7)
  1. HUMIRA [Suspect]
     Active Substance: ADALIMUMAB
     Indication: Rheumatoid arthritis
     Route: 058
  2. HUMIRA [Suspect]
     Active Substance: ADALIMUMAB
     Route: 058
     Dates: start: 20210920
  3. MODERNA COVID-19 VACCINE [Concomitant]
     Active Substance: ELASOMERAN
     Indication: COVID-19 immunisation
     Dosage: TIME INTERVAL: 1 TOTAL: ONE IN ONCE?FIRST DOSE
     Route: 030
     Dates: start: 20210319, end: 20210319
  4. MODERNA COVID-19 VACCINE [Concomitant]
     Active Substance: ELASOMERAN
     Indication: COVID-19 immunisation
     Dosage: TIME INTERVAL: 1 TOTAL: ONE IN ONCE?SECOND DOSE
     Route: 030
     Dates: start: 20210423, end: 20210423
  5. MODERNA COVID-19 VACCINE [Concomitant]
     Active Substance: ELASOMERAN
     Indication: COVID-19 immunisation
     Dosage: TIME INTERVAL: 1 TOTAL: ONE IN ONCE?BOOSTER DOSE
     Route: 030
     Dates: start: 20210831, end: 20210831
  6. METHOTREXATE [Suspect]
     Active Substance: METHOTREXATE
     Indication: Musculoskeletal stiffness
     Dosage: FREQUENCY : 7 A WEEK
     Route: 065
  7. METHOTREXATE [Suspect]
     Active Substance: METHOTREXATE
     Indication: Musculoskeletal stiffness
     Dosage: FREQUENCY : 6 A WEEK, DOSE REDUCED
     Route: 065

REACTIONS (5)
  - Osteoarthritis [Unknown]
  - Muscle spasms [Recovered/Resolved]
  - Weight increased [Recovering/Resolving]
  - Musculoskeletal stiffness [Recovering/Resolving]
  - Peripheral swelling [Recovering/Resolving]
